FAERS Safety Report 4687082-7 (Version None)
Quarter: 2005Q2

REPORT INFORMATION
  Report Type: 
  Country: None (occurrence: None)
  Receive Date: 20050607
  Receipt Date: 20050525
  Transmission Date: 20051028
  Serious: Yes (Hospitalization, Other)
  Sender: FDA-Public Use
  Company Number: USA040670552

PATIENT
  Age: 74 Year
  Sex: Female
  Weight: 42 kg

DRUGS (8)
  1. FORTEO [Suspect]
     Indication: OSTEOPOROSIS
     Dates: start: 20040524, end: 20050301
  2. CORTISONE [Concomitant]
  3. ATENOLOL [Concomitant]
  4. ACETYLSALICYLIC ACID SRT [Concomitant]
  5. CALCIUM CARBONATE [Concomitant]
  6. CRESTOR [Concomitant]
  7. PREDNISONE [Concomitant]
  8. DIGOXIN [Concomitant]

REACTIONS (21)
  - ABDOMINAL DISTENSION [None]
  - AORTIC ANEURYSM [None]
  - AORTIC VALVE INCOMPETENCE [None]
  - ASTHENIA [None]
  - BLOOD PRESSURE DECREASED [None]
  - BONE DISORDER [None]
  - COLLAPSE OF LUNG [None]
  - CORONARY ARTERY DISEASE [None]
  - DYSPNOEA [None]
  - EJECTION FRACTION DECREASED [None]
  - HEART RATE INCREASED [None]
  - HERPES ZOSTER [None]
  - HIRSUTISM [None]
  - INSOMNIA [None]
  - OVERDOSE [None]
  - PHARMACEUTICAL PRODUCT COMPLAINT [None]
  - PNEUMONIA [None]
  - RENAL FAILURE [None]
  - SYNCOPE [None]
  - VASCULAR OCCLUSION [None]
  - WEIGHT INCREASED [None]
